FAERS Safety Report 19642449 (Version 2)
Quarter: 2021Q3

REPORT INFORMATION
  Report Type: Spontaneous
  Country: DE (occurrence: DE)
  Receive Date: 20210731
  Receipt Date: 20210915
  Transmission Date: 20211014
  Serious: Yes (Other)
  Sender: FDA-Public Use
  Company Number: DE-ACCORD-233492

PATIENT
  Age: 36 Year
  Sex: Female
  Weight: 61 kg

DRUGS (4)
  1. LEVOTHYROXINE. [Concomitant]
     Active Substance: LEVOTHYROXINE
     Dosage: 75 MICROGRAM
  2. LEVETIRACETAM. [Suspect]
     Active Substance: LEVETIRACETAM
     Indication: JUVENILE MYOCLONIC EPILEPSY
  3. LAMOTRIGINE. [Interacting]
     Active Substance: LAMOTRIGINE
     Indication: JUVENILE MYOCLONIC EPILEPSY
  4. SLINDA [Interacting]
     Active Substance: DROSPIRENONE
     Indication: HEAVY MENSTRUAL BLEEDING
     Dosage: 4MG, 1X DAY
     Route: 048
     Dates: start: 20210625

REACTIONS (13)
  - Impaired work ability [Unknown]
  - Drug interaction [Unknown]
  - Abdominal distension [Not Recovered/Not Resolved]
  - Pollakiuria [Not Recovered/Not Resolved]
  - General physical health deterioration [Unknown]
  - Epilepsy [Unknown]
  - Micturition urgency [Not Recovered/Not Resolved]
  - Abdominal pain lower [Not Recovered/Not Resolved]
  - Nausea [Not Recovered/Not Resolved]
  - Petit mal epilepsy [Not Recovered/Not Resolved]
  - Arthralgia [Not Recovered/Not Resolved]
  - Depressed mood [Not Recovered/Not Resolved]
  - Irritability [Recovered/Resolved]

NARRATIVE: CASE EVENT DATE: 202106
